FAERS Safety Report 10667103 (Version 4)
Quarter: 2015Q2

REPORT INFORMATION
  Report Type: Spontaneous
  Country: US (occurrence: US)
  Receive Date: 20141222
  Receipt Date: 20150525
  Transmission Date: 20150821
  Serious: Yes (Other)
  Sender: FDA-Public Use
  Company Number: US-JNJFOC-20141208867

PATIENT
  Age: 45 Year
  Sex: Male
  Weight: 83.92 kg

DRUGS (13)
  1. DURAGESIC [Suspect]
     Active Substance: FENTANYL
     Indication: NEURALGIA
     Route: 062
     Dates: end: 2014
  2. DURAGESIC [Suspect]
     Active Substance: FENTANYL
     Indication: NEURALGIA
     Route: 062
     Dates: start: 2014
  3. DURAGESIC [Suspect]
     Active Substance: FENTANYL
     Indication: BACK PAIN
     Route: 062
     Dates: start: 2011
  4. DURAGESIC [Suspect]
     Active Substance: FENTANYL
     Indication: BACK PAIN
     Route: 062
     Dates: end: 2014
  5. OXYCODONE [Concomitant]
     Active Substance: OXYCODONE
     Indication: BREAKTHROUGH PAIN
     Route: 048
  6. DURAGESIC [Suspect]
     Active Substance: FENTANYL
     Indication: NEURALGIA
     Route: 062
  7. DURAGESIC [Suspect]
     Active Substance: FENTANYL
     Indication: NECK PAIN
     Route: 062
  8. DURAGESIC [Suspect]
     Active Substance: FENTANYL
     Indication: NECK PAIN
     Route: 062
     Dates: end: 2014
  9. DURAGESIC [Suspect]
     Active Substance: FENTANYL
     Indication: NECK PAIN
     Route: 062
     Dates: start: 2011
  10. DURAGESIC [Suspect]
     Active Substance: FENTANYL
     Indication: BACK PAIN
     Route: 062
  11. DURAGESIC [Suspect]
     Active Substance: FENTANYL
     Indication: NECK PAIN
     Route: 062
     Dates: start: 2014
  12. DURAGESIC [Suspect]
     Active Substance: FENTANYL
     Indication: BACK PAIN
     Route: 062
     Dates: start: 2014
  13. DURAGESIC [Suspect]
     Active Substance: FENTANYL
     Indication: NEURALGIA
     Route: 062
     Dates: start: 2011

REACTIONS (10)
  - Blood pressure increased [Unknown]
  - Drug effect decreased [Unknown]
  - Heart rate increased [Unknown]
  - Incorrect dose administered [Unknown]
  - Surgery [Unknown]
  - Drug effect decreased [Unknown]
  - Breakthrough pain [Not Recovered/Not Resolved]
  - Product adhesion issue [Unknown]
  - Product quality issue [Unknown]
  - Drug ineffective [Unknown]

NARRATIVE: CASE EVENT DATE: 201212
